FAERS Safety Report 19613539 (Version 1)
Quarter: 2021Q3

REPORT INFORMATION
  Report Type: Spontaneous
  Country: US (occurrence: US)
  Receive Date: 20210726
  Receipt Date: 20210726
  Transmission Date: 20211014
  Serious: No
  Sender: FDA-Public Use
  Company Number: None

PATIENT
  Age: 53 Year
  Sex: Female

DRUGS (1)
  1. ENBREL [Suspect]
     Active Substance: ETANERCEPT
     Indication: RHEUMATOID ARTHRITIS
     Route: 058
     Dates: start: 20210701

REACTIONS (7)
  - Joint swelling [None]
  - Histoplasmosis [None]
  - Therapy interrupted [None]
  - Peripheral swelling [None]
  - Pain [None]
  - Infection [None]
  - Joint stiffness [None]

NARRATIVE: CASE EVENT DATE: 20210701
